FAERS Safety Report 12103778 (Version 1)
Quarter: 2016Q1

REPORT INFORMATION
  Report Type: Spontaneous
  Country: CN (occurrence: CN)
  Receive Date: 20160223
  Receipt Date: 20160223
  Transmission Date: 20160526
  Serious: Yes (Hospitalization)
  Sender: FDA-Public Use
  Company Number: CN-ROCHE-1712740

PATIENT
  Age: 23 Year
  Sex: Male

DRUGS (3)
  1. BEVACIZUMAB [Suspect]
     Active Substance: BEVACIZUMAB
     Indication: FIBROSARCOMA
     Route: 065
  2. DOCETAXOL [Concomitant]
     Active Substance: DOCETAXEL
     Indication: FIBROSARCOMA
     Route: 065
  3. CISPLATIN. [Concomitant]
     Active Substance: CISPLATIN
     Indication: FIBROSARCOMA
     Route: 065

REACTIONS (1)
  - Pneumothorax spontaneous [Recovered/Resolved]
